FAERS Safety Report 5693054-6 (Version None)
Quarter: 2008Q2

REPORT INFORMATION
  Report Type: 
  Country: None (occurrence: None)
  Receive Date: 20080402
  Receipt Date: 20080402
  Transmission Date: 20081010
  Serious: Yes (Other)
  Sender: FDA-Public Use
  Company Number: None

PATIENT
  Age: 37 Year
  Sex: Female
  Weight: 72.5755 kg

DRUGS (1)
  1. ORTHO EVRA [Suspect]
     Indication: OVARIAN CYST
     Dosage: 1 PATCH WEEKLY FOR 3 WEEKS TRANSDERMAL
     Route: 062
     Dates: start: 20020701, end: 20041101

REACTIONS (1)
  - ARTHROPATHY [None]
